FAERS Safety Report 7571227-5 (Version None)
Quarter: 2011Q2

REPORT INFORMATION
  Report Type: 
  Country: None (occurrence: None)
  Receive Date: 20110624
  Receipt Date: 20110617
  Transmission Date: 20111010
  Serious: Yes (Other)
  Sender: FDA-Public Use
  Company Number: A0922449A

PATIENT
  Age: 71 Year
  Sex: Male

DRUGS (4)
  1. PARNATE [Suspect]
     Dosage: 40MG PER DAY
     Route: 048
  2. LAMICTAL [Concomitant]
     Dosage: 50MG PER DAY
     Route: 048
     Dates: start: 20110517
  3. LITHIUM CARBONATE [Concomitant]
     Dosage: 1200MG PER DAY
     Route: 048
  4. LIOTHYRONINE SODIUM [Concomitant]
     Route: 048

REACTIONS (4)
  - FEELING ABNORMAL [None]
  - AGGRESSION [None]
  - TREMOR [None]
  - FEELING DRUNK [None]
